FAERS Safety Report 11116007 (Version 1)
Quarter: 2015Q2

REPORT INFORMATION
  Report Type: Spontaneous
  Country: US (occurrence: None)
  Receive Date: 20150514
  Receipt Date: 20150514
  Transmission Date: 20150821
  Serious: Yes (Disabling, Other)
  Sender: FDA-Public Use
  Company Number: None

PATIENT
  Age: 48 Year
  Sex: Female

DRUGS (1)
  1. PREDNISOLONE ACETATE 1% [Suspect]
     Active Substance: PREDNISOLONE ACETATE
     Indication: UVEITIS
     Dosage: ONE DROP 4-5XDAY
     Route: 047
     Dates: start: 20050909, end: 20051010

REACTIONS (2)
  - Burning sensation [None]
  - Sensation of foreign body [None]

NARRATIVE: CASE EVENT DATE: 20150427
